FAERS Safety Report 4537427-3 (Version None)
Quarter: 2004Q4

REPORT INFORMATION
  Report Type: 
  Country: None (occurrence: None)
  Receive Date: 20041216
  Receipt Date: 20040624
  Transmission Date: 20050328
  Serious: Yes (Death)
  Sender: FDA-Public Use
  Company Number: HQWYE710525JUN04

PATIENT
  Age: 25 Year
  Sex: Male
  Weight: 70.82 kg

DRUGS (3)
  1. EFFEXOR XR [Suspect]
     Indication: DEPRESSION
     Dosage: 75 MG 3X PER 1 DAY, ORAL
     Route: 048
     Dates: start: 19980101, end: 19980814
  2. BUSPAR [Suspect]
     Indication: ANXIETY
     Dosage: 10MG 3X PER 1 DAY
     Dates: start: 19980105
  3. BUSPAR [Suspect]
     Indication: DEPRESSION
     Dosage: 10MG 3X PER 1 DAY
     Dates: start: 19980105

REACTIONS (3)
  - COMPLETED SUICIDE [None]
  - DRUG INEFFECTIVE [None]
  - SUICIDAL IDEATION [None]
